FAERS Safety Report 5739923-X (Version None)
Quarter: 2008Q2

REPORT INFORMATION
  Report Type: 
  Country: None (occurrence: None)
  Receive Date: 20080516
  Receipt Date: 20080505
  Transmission Date: 20081010
  Serious: Yes (Other)
  Sender: FDA-Public Use
  Company Number: HQWYE191516JUL04

PATIENT
  Sex: Female

DRUGS (11)
  1. PREMPRO [Suspect]
  2. MEDROXYPROGESTERONE ACETATE [Suspect]
  3. MEDROXYPROGESTERONE ACETATE [Suspect]
     Indication: HORMONE REPLACEMENT THERAPY
  4. MEDROXYPROGESTERONE ACETATE [Suspect]
     Indication: MENOPAUSE
  5. OGEN [Suspect]
  6. ESTRACE [Suspect]
  7. ESTRATEST H.S. [Suspect]
  8. MENEST [Suspect]
  9. NORETHINDRONE/ETHINYL ESTRADIOL [Suspect]
  10. PREMARIN [Suspect]
  11. PROMETRIUM [Suspect]

REACTIONS (1)
  - CONTRALATERAL BREAST CANCER [None]
